FAERS Safety Report 6519880-9 (Version None)
Quarter: 2009Q4

REPORT INFORMATION
  Report Type: 
  Country: None (occurrence: None)
  Receive Date: 20091228
  Receipt Date: 20091216
  Transmission Date: 20100525
  Serious: Yes (Life-Threatening, Hospitalization, Disabling, Other)
  Sender: FDA-Public Use
  Company Number: US-JNJCH-2009032723

PATIENT
  Age: 58 Year
  Sex: Male

DRUGS (1)
  1. ASPIRIN [Suspect]
     Indication: BACK PAIN
     Dosage: TEXT:UNSPECIFIED - DAILY
     Route: 048

REACTIONS (3)
  - GRAND MAL CONVULSION [None]
  - RENAL FAILURE [None]
  - THERAPEUTIC AGENT TOXICITY [None]
